FAERS Safety Report 17915693 (Version 2)
Quarter: 2025Q2

REPORT INFORMATION
  Report Type: Report from Study
  Country: FR (occurrence: FR)
  Receive Date: 20200619
  Receipt Date: 20250516
  Transmission Date: 20250717
  Serious: Yes (Hospitalization, Other)
  Sender: AUROBINDO
  Company Number: FR-KRKA-FR2020K09273LIT

PATIENT
  Age: 88 Year
  Sex: Female

DRUGS (6)
  1. FUROSEMIDE [Suspect]
     Active Substance: FUROSEMIDE
     Indication: Product used for unknown indication
     Route: 065
  2. PREDNISONE [Suspect]
     Active Substance: PREDNISONE
     Indication: Product used for unknown indication
     Route: 065
  3. TADALAFIL [Suspect]
     Active Substance: TADALAFIL
     Indication: Product used for unknown indication
     Route: 065
  4. FLUINDIONE [Suspect]
     Active Substance: FLUINDIONE
     Indication: Product used for unknown indication
     Route: 065
  5. OXYGEN [Suspect]
     Active Substance: OXYGEN
     Indication: Product used for unknown indication
     Route: 065
  6. POTASSIUM CHLORIDE [Suspect]
     Active Substance: POTASSIUM CHLORIDE
     Indication: Product used for unknown indication
     Route: 065

REACTIONS (8)
  - Immobilisation prolonged [Unknown]
  - Burning sensation [Unknown]
  - Condition aggravated [Unknown]
  - Asthenia [Unknown]
  - Urinary incontinence [Unknown]
  - Disturbance in attention [Unknown]
  - Erythema [Unknown]
  - Genital rash [Unknown]
